FAERS Safety Report 8943212 (Version 2)
Quarter: 2013Q1

REPORT INFORMATION
  Report Type: Spontaneous
  Country: None (occurrence: US)
  Receive Date: 20121204
  Receipt Date: 20130328
  Transmission Date: 20140127
  Serious: Yes (Death)
  Sender: FDA-Public Use
  Company Number: US-COVIDIEN/TYCO HEALTHCARE/MALLINCKRODT-T201204198

PATIENT
  Age: 41 Year
  Sex: Female
  Weight: 65.76 kg

DRUGS (11)
  1. FENTANYL TRANSDERMAL SYSTEM [Suspect]
     Indication: PRODUCT USED FOR UNKNOWN INDICATION
     Dosage: 50 MG PATCH, 5 IN LESS THAN A 50 HOUR PERIOD
     Route: 062
     Dates: start: 201108
  2. ROXICODONE [Suspect]
     Indication: PRODUCT USED FOR UNKNOWN INDICATION
     Dosage: 10 MG PRN
     Dates: start: 201108
  3. BENTYL [Suspect]
     Dosage: UNK
  4. CLONAZEPAM [Suspect]
     Dosage: UNK
  5. ZOLPIDEM [Suspect]
     Dosage: UNK
  6. NEURONTIN [Suspect]
     Indication: PRODUCT USED FOR UNKNOWN INDICATION
     Dosage: 300 X 60 BID
     Dates: start: 201108
  7. CLONIDINE [Concomitant]
  8. DEPAKOTE [Concomitant]
  9. KLONOPINE [Concomitant]
  10. PROZAC [Concomitant]
  11. LUNESTA [Concomitant]

REACTIONS (2)
  - Overdose [Fatal]
  - Respiratory arrest [Fatal]
